FAERS Safety Report 22639312 (Version 1)
Quarter: 2023Q2

REPORT INFORMATION
  Report Type: Spontaneous
  Country: US (occurrence: US)
  Receive Date: 20230626
  Receipt Date: 20230626
  Transmission Date: 20230721
  Serious: No
  Sender: FDA-Public Use
  Company Number: US-ABBVIE-5302976

PATIENT
  Sex: Female

DRUGS (2)
  1. RINVOQ [Suspect]
     Active Substance: UPADACITINIB
     Indication: Crohn^s disease
     Route: 048
     Dates: start: 2023
  2. TUMS [Concomitant]
     Active Substance: CALCIUM CARBONATE
     Indication: Chest discomfort

REACTIONS (5)
  - Dyspepsia [Recovering/Resolving]
  - Ageusia [Recovered/Resolved]
  - Taste disorder [Unknown]
  - Chest discomfort [Recovering/Resolving]
  - Anal incontinence [Recovering/Resolving]

NARRATIVE: CASE EVENT DATE: 20230101
